FAERS Safety Report 6258341-1 (Version None)
Quarter: 2009Q3

REPORT INFORMATION
  Report Type: 
  Country: None (occurrence: None)
  Receive Date: 20090707
  Receipt Date: 20090701
  Transmission Date: 20100115
  Serious: Yes (Life-Threatening, Hospitalization, Other)
  Sender: FDA-Public Use
  Company Number: PHHO2009US07171

PATIENT
  Sex: Female
  Weight: 57.2 kg

DRUGS (16)
  1. RAD 666 RAD+TAB [Suspect]
     Indication: MULTIPLE MYELOMA
     Dosage: 5 MG/DAY
     Route: 048
     Dates: start: 20090421, end: 20090602
  2. REVLIMID [Suspect]
     Indication: MULTIPLE MYELOMA
     Dosage: 15 MG/DAY
     Route: 048
     Dates: start: 20090421, end: 20090602
  3. AUGMENTIN [Concomitant]
  4. LOVENOX [Concomitant]
  5. BACTRIM [Concomitant]
  6. ACYCLOVIR [Concomitant]
  7. FLUTICASONE [Concomitant]
  8. GABAPENTIN [Concomitant]
  9. OMEPRAZOLE [Concomitant]
  10. LOMOTIL [Concomitant]
  11. ALBUTEROL [Concomitant]
  12. LEUCOVORIN CALCIUM [Concomitant]
  13. LEVOTHYROXINE SODIUM [Concomitant]
  14. PROBIOTICS (MICROORGANISMS W/PROBIOTIC ACTION) [Concomitant]
  15. CIPROFLAXACIN [Concomitant]
  16. METRONIDAZOLE [Concomitant]

REACTIONS (27)
  - ABDOMINAL PAIN [None]
  - ATELECTASIS [None]
  - BACTERIAL INFECTION [None]
  - CARDIAC ARREST [None]
  - CARDIAC FAILURE CONGESTIVE [None]
  - CARDIOMEGALY [None]
  - CHILLS [None]
  - DYSPNOEA [None]
  - ELECTROCARDIOGRAM ABNORMAL [None]
  - ELECTROLYTE IMBALANCE [None]
  - FEBRILE NEUTROPENIA [None]
  - HYPOKALAEMIA [None]
  - HYPOMAGNESAEMIA [None]
  - HYPOXIA [None]
  - MALIGNANT NEOPLASM PROGRESSION [None]
  - NAUSEA [None]
  - NEUTROPHIL COUNT DECREASED [None]
  - OEDEMA PERIPHERAL [None]
  - PLEURAL EFFUSION [None]
  - PSEUDOMONAS INFECTION [None]
  - PULMONARY CONGESTION [None]
  - PULMONARY OEDEMA [None]
  - PYREXIA [None]
  - THROMBOCYTOPENIA [None]
  - TORSADE DE POINTES [None]
  - URINARY TRACT INFECTION FUNGAL [None]
  - VOMITING [None]
